FAERS Safety Report 12723925 (Version 2)
Quarter: 2016Q4

REPORT INFORMATION
  Report Type: Spontaneous
  Country: US (occurrence: US)
  Receive Date: 20160908
  Receipt Date: 20161010
  Transmission Date: 20170207
  Serious: No
  Sender: FDA-Public Use
  Company Number: US-JNJFOC-20160903602

PATIENT
  Sex: Female
  Weight: 90.72 kg

DRUGS (3)
  1. ULTRAM ER [Suspect]
     Active Substance: TRAMADOL HYDROCHLORIDE
     Indication: FIBROMYALGIA
     Route: 065
  2. ULTRAM ER [Suspect]
     Active Substance: TRAMADOL HYDROCHLORIDE
     Indication: FIBROMYALGIA
     Route: 065
  3. TRAMADOL. [Suspect]
     Active Substance: TRAMADOL
     Indication: FIBROMYALGIA
     Route: 065

REACTIONS (2)
  - Drug ineffective [Unknown]
  - Drug dose omission [Unknown]

NARRATIVE: CASE EVENT DATE: 2016
